FAERS Safety Report 5732689-9 (Version None)
Quarter: 2008Q2

REPORT INFORMATION
  Report Type: 
  Country: None (occurrence: None)
  Receive Date: 20080509
  Receipt Date: 20080428
  Transmission Date: 20081010
  Serious: Yes (Death)
  Sender: FDA-Public Use
  Company Number: US-BAYER-200811468BCC

PATIENT
  Age: 50 Year
  Sex: Female

DRUGS (1)
  1. ALKA SELTZER PLUS FOR COLD AND COUGH [Suspect]
     Indication: NASOPHARYNGITIS

REACTIONS (1)
  - CEREBROVASCULAR ACCIDENT [None]
